FAERS Safety Report 11846385 (Version 3)
Quarter: 2016Q1

REPORT INFORMATION
  Report Type: Report from Study
  Country: US (occurrence: US)
  Receive Date: 20151217
  Receipt Date: 20160215
  Transmission Date: 20160526
  Serious: Yes (Hospitalization, Other)
  Sender: FDA-Public Use
  Company Number: US-BAYER-2015-459110

PATIENT
  Age: 58 Year
  Sex: Male

DRUGS (3)
  1. NEXAVAR [Suspect]
     Active Substance: SORAFENIB
     Indication: HEPATOCELLULAR CARCINOMA
     Dosage: 400 MG, BID
     Route: 048
     Dates: start: 20151023, end: 20151027
  2. NEXAVAR [Suspect]
     Active Substance: SORAFENIB
     Indication: HEPATOCELLULAR CARCINOMA
     Dosage: 200 MG, BID
     Route: 048
     Dates: start: 20151028, end: 20151128
  3. NEXAVAR [Suspect]
     Active Substance: SORAFENIB
     Indication: HEPATOCELLULAR CARCINOMA
     Dosage: 200 MG, BID
     Route: 048
     Dates: start: 20151223, end: 20160126

REACTIONS (13)
  - Blood albumin increased [None]
  - Wrong technique in product usage process [None]
  - Hospitalisation [None]
  - Neoplasm [None]
  - Confusional state [None]
  - Dysphonia [None]
  - Hepatocellular carcinoma [None]
  - Blood creatinine increased [None]
  - Muscle spasms [None]
  - Hiccups [None]
  - Weight decreased [None]
  - Hepatic enzyme increased [None]
  - Ammonia increased [None]

NARRATIVE: CASE EVENT DATE: 2015
